FAERS Safety Report 7110626-2 (Version None)
Quarter: 2010Q4

REPORT INFORMATION
  Report Type: 
  Country: None (occurrence: None)
  Receive Date: 20101118
  Receipt Date: 20101111
  Transmission Date: 20110411
  Serious: Yes (Other)
  Sender: FDA-Public Use
  Company Number: JP-PFIZER INC-JP-WYE-H18475310

PATIENT
  Age: 75 Year
  Sex: Male

DRUGS (3)
  1. VFEND [Suspect]
     Dosage: UNK
     Dates: start: 20101027
  2. METHOTREXATE SODIUM [Suspect]
     Indication: LYMPHOMA
     Dosage: UNSPECIFIED - HIGH DOSE
     Dates: start: 20101025
  3. LEUCOVORIN CALCIUM [Suspect]
     Dosage: UNK
     Route: 042

REACTIONS (6)
  - BLOOD BETA-D-GLUCAN INCREASED [None]
  - BLOOD POTASSIUM DECREASED [None]
  - DIABETES INSIPIDUS [None]
  - ENDOPHTHALMITIS [None]
  - NEUTROPENIA [None]
  - PYREXIA [None]
